FAERS Safety Report 9351725 (Version 1)
Quarter: 2013Q2

REPORT INFORMATION
  Report Type: Spontaneous
  Country: DE (occurrence: None)
  Receive Date: 20130612
  Receipt Date: 20130612
  Transmission Date: 20140414
  Serious: Yes (Hospitalization)
  Sender: FDA-Public Use
  Company Number: 2013-229

PATIENT
  Age: 14 Year
  Sex: Female

DRUGS (1)
  1. CLOZAPINE [Suspect]
     Route: 048

REACTIONS (5)
  - Renal failure [None]
  - Pancreatitis [None]
  - Overdose [None]
  - Rhabdomyolysis [None]
  - Pneumonia aspiration [None]
